FAERS Safety Report 22205150 (Version 1)
Quarter: 2023Q2

REPORT INFORMATION
  Report Type: Spontaneous
  Country: NL (occurrence: NL)
  Receive Date: 20230413
  Receipt Date: 20230413
  Transmission Date: 20230721
  Serious: Yes (Other)
  Sender: FDA-Public Use
  Company Number: None

PATIENT
  Sex: Male
  Weight: 70 kg

DRUGS (1)
  1. MOXIFLOXACIN [Suspect]
     Active Substance: MOXIFLOXACIN
     Indication: Pneumonia
     Dosage: MOXIFLOXACINE TABLET FO 400MG / BRAND NAME NOT SPECIFIED
     Route: 065
     Dates: start: 20230304, end: 20230308

REACTIONS (2)
  - Methaemoglobinaemia [Recovered/Resolved]
  - Haemolysis [Unknown]
